FAERS Safety Report 6814999-7 (Version None)
Quarter: 2010Q2

REPORT INFORMATION
  Report Type: 
  Country: None (occurrence: None)
  Receive Date: 20100630
  Receipt Date: 20100630
  Transmission Date: 20101027
  Serious: Yes (Other)
  Sender: FDA-Public Use
  Company Number: None

PATIENT
  Age: 61 Year
  Sex: Female
  Weight: 53.0709 kg

DRUGS (2)
  1. BOTOX [Suspect]
     Indication: SKIN COSMETIC PROCEDURE
     Dosage: 6 ON RIGHT SIDE OF TEMPLE DONE IN 2 VISITS
     Dates: start: 20100610, end: 20100610
  2. BOTOX [Suspect]
     Indication: SKIN COSMETIC PROCEDURE
     Dosage: 6 ON RIGHT SIDE OF TEMPLE DONE IN 2 VISITS
     Dates: start: 20100616, end: 20100616

REACTIONS (1)
  - HEADACHE [None]
